FAERS Safety Report 21419295 (Version 1)
Quarter: 2022Q4

REPORT INFORMATION
  Report Type: Report from Study
  Country: AR (occurrence: AR)
  Receive Date: 20221006
  Receipt Date: 20221006
  Transmission Date: 20230112
  Serious: Yes (Other)
  Sender: FDA-Public Use
  Company Number: AR-ABBVIE-4141593

PATIENT
  Age: 13 Year
  Sex: Male

DRUGS (1)
  1. HUMIRA [Suspect]
     Active Substance: ADALIMUMAB
     Indication: Crohn^s disease
     Route: 058
     Dates: start: 20211012

REACTIONS (3)
  - Testicular torsion [Unknown]
  - Crohn^s disease [Unknown]
  - Testicular operation [Unknown]

NARRATIVE: CASE EVENT DATE: 20220501
